FAERS Safety Report 11080846 (Version 1)
Quarter: 2015Q2

REPORT INFORMATION
  Report Type: Spontaneous
  Country: None (occurrence: None)
  Receive Date: 20150430
  Receipt Date: 20150430
  Transmission Date: 20150821
  Serious: No
  Sender: FDA-Public Use
  Company Number: None

PATIENT
  Age: 55 Year
  Sex: Male

DRUGS (11)
  1. OLMESARTAN [Concomitant]
     Active Substance: OLMESARTAN
  2. ESCITALOPRAM [Concomitant]
     Active Substance: ESCITALOPRAM OXALATE
  3. NORCO [Concomitant]
     Active Substance: ACETAMINOPHEN\HYDROCODONE BITARTRATE
  4. FISH OIL [Concomitant]
     Active Substance: FISH OIL
  5. LIDOCAINE. [Concomitant]
     Active Substance: LIDOCAINE
  6. METFORMIN [Concomitant]
     Active Substance: METFORMIN HYDROCHLORIDE
  7. CLONAZEPAM. [Concomitant]
     Active Substance: CLONAZEPAM
  8. HARVONI [Suspect]
     Active Substance: LEDIPASVIR\SOFOSBUVIR
     Indication: HEPATIC CIRRHOSIS
     Dosage: 1 TAB
     Route: 048
     Dates: start: 20150102, end: 20150210
  9. OXYCODONE [Concomitant]
     Active Substance: OXYCODONE
  10. GABAPENTIN. [Concomitant]
     Active Substance: GABAPENTIN
  11. HARVONI [Suspect]
     Active Substance: LEDIPASVIR\SOFOSBUVIR
     Indication: HEPATITIS C VIRUS TEST POSITIVE
     Dosage: 1 TAB
     Route: 048
     Dates: start: 20150102, end: 20150210

REACTIONS (2)
  - Rash [None]
  - Productive cough [None]

NARRATIVE: CASE EVENT DATE: 20150218
